FAERS Safety Report 9189259 (Version 1)
Quarter: 2013Q1

REPORT INFORMATION
  Report Type: Spontaneous
  Country: US (occurrence: None)
  Receive Date: 20130321
  Receipt Date: 20130321
  Transmission Date: 20140127
  Serious: Yes (Life-Threatening, Disabling, Other)
  Sender: FDA-Public Use
  Company Number: None

PATIENT
  Age: 49 Year
  Sex: Female
  Weight: 61.24 kg

DRUGS (6)
  1. CYMBALTA [Suspect]
     Indication: DEPRESSION
     Dosage: 1 60 MG CAPSULE DAILY PO
     Route: 048
     Dates: start: 20120307, end: 20130320
  2. CYMBALTA [Suspect]
     Indication: FIBROMYALGIA
     Dosage: 1 60 MG CAPSULE DAILY PO
     Route: 048
     Dates: start: 20120307, end: 20130320
  3. CYMBALTA [Suspect]
     Indication: PAIN
     Dosage: 1 60 MG CAPSULE DAILY PO
     Route: 048
     Dates: start: 20120307, end: 20130320
  4. HYDROMORPHONE [Concomitant]
  5. CYCLOBENZAPRENE [Concomitant]
  6. DILT XR [Concomitant]

REACTIONS (44)
  - Heart rate irregular [None]
  - Nausea [None]
  - Dizziness [None]
  - Hyperhidrosis [None]
  - Weight increased [None]
  - Constipation [None]
  - Suicidal ideation [None]
  - Balance disorder [None]
  - Tremor [None]
  - Loss of control of legs [None]
  - Musculoskeletal disorder [None]
  - Fall [None]
  - Headache [None]
  - Anger [None]
  - Mood swings [None]
  - Depression [None]
  - Musculoskeletal discomfort [None]
  - Generalised oedema [None]
  - Abdominal pain upper [None]
  - Abdominal distension [None]
  - Loss of consciousness [None]
  - Vomiting projectile [None]
  - Confusional state [None]
  - Aphasia [None]
  - Pain in extremity [None]
  - Pelvic pain [None]
  - Nervousness [None]
  - Agoraphobia [None]
  - Memory impairment [None]
  - Pallor [None]
  - Hypoaesthesia [None]
  - Paraesthesia oral [None]
  - Chills [None]
  - Pyrexia [None]
  - Insomnia [None]
  - Somnolence [None]
  - Decreased appetite [None]
  - Dyspepsia [None]
  - Feeling hot [None]
  - Cold sweat [None]
  - Vision blurred [None]
  - Emotional disorder [None]
  - Agitation [None]
  - Fatigue [None]
